FAERS Safety Report 9548480 (Version 1)
Quarter: 2013Q3

REPORT INFORMATION
  Report Type: Spontaneous
  Country: US (occurrence: US)
  Receive Date: 20130924
  Receipt Date: 20130924
  Transmission Date: 20140515
  Serious: No
  Sender: FDA-Public Use
  Company Number: US-PFIZER INC-2013269824

PATIENT
  Age: 61 Year
  Sex: Female
  Weight: 56.24 kg

DRUGS (7)
  1. CIPROFLOXACIN [Suspect]
     Dosage: UNK
  2. NEURONTIN [Suspect]
     Dosage: UNK
  3. MORPHINE SULFATE [Suspect]
     Dosage: UNK
  4. DILAUDID [Suspect]
     Dosage: UNK
  5. LEVOTHROID [Suspect]
     Dosage: UNK
  6. PREDNISONE [Suspect]
     Dosage: UNK
  7. LYRICA [Suspect]
     Dosage: UNK

REACTIONS (1)
  - Drug hypersensitivity [Unknown]
